FAERS Safety Report 8291758-2 (Version None)
Quarter: 2012Q2

REPORT INFORMATION
  Report Type: 
  Country: None (occurrence: None)
  Receive Date: 20120417
  Receipt Date: 20110304
  Transmission Date: 20120825
  Serious: No
  Sender: FDA-Public Use
  Company Number: US-ASTRAZENECA-2011SE11495

PATIENT
  Age: 67 Year
  Sex: Female

DRUGS (4)
  1. WELLBUTRIN [Concomitant]
  2. NEXIUM [Suspect]
     Indication: GASTROOESOPHAGEAL REFLUX DISEASE
     Route: 048
     Dates: start: 20110228
  3. CLONAZEPAM [Concomitant]
     Indication: INSOMNIA
  4. ZOLOFT [Concomitant]

REACTIONS (11)
  - HEADACHE [None]
  - CONSTIPATION [None]
  - TREMOR [None]
  - SLEEP DISORDER DUE TO GENERAL MEDICAL CONDITION, INSOMNIA TYPE [None]
  - NOCTURIA [None]
  - EAR DISCOMFORT [None]
  - NASAL CONGESTION [None]
  - NECK PAIN [None]
  - DYSPHONIA [None]
  - THROAT IRRITATION [None]
  - CHEST DISCOMFORT [None]
